FAERS Safety Report 9883812 (Version 3)
Quarter: 2015Q2

REPORT INFORMATION
  Report Type: Spontaneous
  Country: US (occurrence: US)
  Receive Date: 20140210
  Receipt Date: 20150607
  Transmission Date: 20150821
  Serious: Yes (Hospitalization, Congenital Anomaly, Other)
  Sender: FDA-Public Use
  Company Number: US-ELI_LILLY_AND_COMPANY-US201402000332

PATIENT
  Age: 1 Day
  Sex: Female

DRUGS (5)
  1. HALDOL [Concomitant]
     Active Substance: HALOPERIDOL
     Indication: BIPOLAR DISORDER
     Dosage: 7.5 MG, QD
     Route: 064
  2. UNISOM                             /00000402/ [Concomitant]
     Dosage: UNK, QD
  3. VITAMIN B6 [Concomitant]
     Active Substance: PYRIDOXINE HYDROCHLORIDE
     Dosage: UNK, QD
  4. PROZAC [Suspect]
     Active Substance: FLUOXETINE HYDROCHLORIDE
     Indication: BIPOLAR DISORDER
     Dosage: 20 MG, QD
     Route: 064
  5. PRENATAL VITAMINS                  /08195401/ [Concomitant]

REACTIONS (7)
  - Plagiocephaly [Unknown]
  - Polyhydramnios [Unknown]
  - Foetal exposure during pregnancy [Recovered/Resolved]
  - Seizure like phenomena [Unknown]
  - Brain malformation [Unknown]
  - Cerebral ventricle dilatation [Unknown]
  - Congenital central nervous system anomaly [Unknown]

NARRATIVE: CASE EVENT DATE: 20080524
